FAERS Safety Report 19530611 (Version 2)
Quarter: 2021Q3

REPORT INFORMATION
  Report Type: Report from Study
  Country: None (occurrence: US)
  Receive Date: 20210713
  Receipt Date: 20210720
  Transmission Date: 20211014
  Serious: Yes (Hospitalization, Other)
  Sender: FDA-Public Use
  Company Number: US-ABBVIE-20K-163-3426497-00

PATIENT
  Sex: Female
  Weight: 112.59 kg

DRUGS (4)
  1. MODERNA COVID?19 VACCINE [Concomitant]
     Active Substance: CX-024414
     Dosage: MODERNA
     Route: 030
     Dates: start: 20210512, end: 20210512
  2. RINVOQ [Suspect]
     Active Substance: UPADACITINIB
     Indication: RHEUMATOID ARTHRITIS
     Route: 048
     Dates: start: 202010
  3. PLAQUENIL [Concomitant]
     Active Substance: HYDROXYCHLOROQUINE SULFATE
     Indication: RHEUMATOID ARTHRITIS
  4. MODERNA COVID?19 VACCINE [Concomitant]
     Active Substance: CX-024414
     Indication: COVID-19 IMMUNISATION
     Dosage: MODERNA
     Route: 030
     Dates: start: 20210420, end: 20210420

REACTIONS (8)
  - Dizziness [Recovering/Resolving]
  - Renal disorder [Recovering/Resolving]
  - Renal injury [Not Recovered/Not Resolved]
  - Peripheral swelling [Recovering/Resolving]
  - Renal failure [Recovered/Resolved]
  - End stage renal disease [Recovered/Resolved]
  - Fall [Recovered/Resolved]
  - Blood creatinine increased [Unknown]
